FAERS Safety Report 14665077 (Version 2)
Quarter: 2018Q2

REPORT INFORMATION
  Report Type: Spontaneous
  Country: BE (occurrence: BE)
  Receive Date: 20180321
  Receipt Date: 20180417
  Transmission Date: 20180711
  Serious: Yes (Other)
  Sender: FDA-Public Use
  Company Number: BE-009507513-1803BEL007263

PATIENT
  Age: 29 Year
  Sex: Female

DRUGS (4)
  1. ALBUTEROL. [Suspect]
     Active Substance: ALBUTEROL
     Indication: HYDROPS FOETALIS
     Dosage: 10 MG, TID 26 WEEKS OF GESTATION
     Route: 048
  2. ALBUTEROL. [Suspect]
     Active Substance: ALBUTEROL
     Indication: FOETAL HEART RATE INCREASED
     Dosage: 10 MG, BID AT 26 WEEKS OF GESTATION
     Route: 048
  3. BETAMETHASONE SODIUM PHOSPHATE [Suspect]
     Active Substance: BETAMETHASONE SODIUM PHOSPHATE
     Indication: HYDROPS FOETALIS
     Dosage: 12 MG, UNK
     Route: 030
  4. ALBUTEROL. [Suspect]
     Active Substance: ALBUTEROL
     Dosage: 10 MG 5 TIMES DAILY AT 31 WEEKS 1 DAY OF GESTATION
     Route: 048

REACTIONS (6)
  - Live birth [Unknown]
  - Hypokalaemia [Unknown]
  - Heart rate increased [Unknown]
  - Exposure during pregnancy [Unknown]
  - Premature delivery [Unknown]
  - Maternal exposure during pregnancy [Unknown]
